FAERS Safety Report 8832013 (Version 2)
Quarter: 2014Q3

REPORT INFORMATION
  Report Type: Report from Study
  Country: US (occurrence: US)
  Receive Date: 20121009
  Receipt Date: 20140825
  Transmission Date: 20150326
  Serious: Yes (Hospitalization, Other)
  Sender: FDA-Public Use
  Company Number: US-ROCHE-1135694

PATIENT
  Sex: Female

DRUGS (8)
  1. RITUXAN [Suspect]
     Active Substance: RITUXIMAB
     Indication: IMMUNE THROMBOCYTOPENIC PURPURA
     Route: 042
     Dates: start: 20011221
  2. AVAPRO [Concomitant]
     Active Substance: IRBESARTAN
     Route: 065
  3. RITUXAN [Suspect]
     Active Substance: RITUXIMAB
     Indication: OFF LABEL USE
  4. ATENOLOL. [Concomitant]
     Active Substance: ATENOLOL
  5. MICRO K EXTENCAPS [Concomitant]
  6. COLACE [Concomitant]
     Active Substance: DOCUSATE SODIUM
  7. PREDNISOLONE. [Concomitant]
     Active Substance: PREDNISOLONE
  8. ARICEPT [Concomitant]
     Active Substance: DONEPEZIL HYDROCHLORIDE

REACTIONS (20)
  - Productive cough [Unknown]
  - Vomiting [Unknown]
  - Nausea [Unknown]
  - Tachycardia [Unknown]
  - Fatigue [Unknown]
  - Syncope [Recovered/Resolved]
  - Chills [Unknown]
  - Oral candidiasis [Unknown]
  - Sputum discoloured [Unknown]
  - Off label use [Unknown]
  - Stomatitis [Unknown]
  - Pneumonia [Unknown]
  - Decubitus ulcer [Recovered/Resolved]
  - Asthenia [Unknown]
  - Paronychia [Recovered/Resolved]
  - Dysphonia [Unknown]
  - Decreased appetite [Unknown]
  - Haematochezia [Unknown]
  - Diarrhoea [Unknown]
  - Leukocytosis [Unknown]
